FAERS Safety Report 7257198-X (Version None)
Quarter: 2011Q1

REPORT INFORMATION
  Report Type: 
  Country: None (occurrence: None)
  Receive Date: 20110129
  Receipt Date: 20100720
  Transmission Date: 20110831
  Serious: No
  Sender: FDA-Public Use
  Company Number: US-ABBOTT-10P-163-0658634-00

PATIENT
  Age: 53 Year
  Sex: Male

DRUGS (2)
  1. VASOTEC [Concomitant]
     Indication: BLOOD PRESSURE
  2. HUMIRA [Suspect]
     Indication: ANKYLOSING SPONDYLITIS
     Dates: start: 20100501

REACTIONS (2)
  - TOOTHACHE [None]
  - OEDEMA MOUTH [None]
